FAERS Safety Report 5944848-0 (Version None)
Quarter: 2008Q4

REPORT INFORMATION
  Report Type: 
  Country: None (occurrence: None)
  Receive Date: 20081107
  Receipt Date: 20081029
  Transmission Date: 20090506
  Serious: Yes (Hospitalization)
  Sender: FDA-Public Use
  Company Number: US-ABBOTT-08P-163-0479712-00

PATIENT
  Sex: Female
  Weight: 44.038 kg

DRUGS (4)
  1. HUMIRA [Suspect]
     Indication: RHEUMATOID ARTHRITIS
     Route: 058
     Dates: start: 20021001
  2. ATENOLOL [Concomitant]
     Indication: DRUG USE FOR UNKNOWN INDICATION
  3. OLMESARTAN MEDOXOMIL [Concomitant]
     Indication: DRUG USE FOR UNKNOWN INDICATION
  4. TRIAMTERINE [Concomitant]
     Indication: DRUG USE FOR UNKNOWN INDICATION

REACTIONS (5)
  - BACK PAIN [None]
  - FALL [None]
  - HAND FRACTURE [None]
  - PELVIC FRACTURE [None]
  - UNDERDOSE [None]
